FAERS Safety Report 8445990-5 (Version None)
Quarter: 2012Q2

REPORT INFORMATION
  Report Type: 
  Country: None (occurrence: None)
  Receive Date: 20120618
  Receipt Date: 20120612
  Transmission Date: 20120825
  Serious: Yes (Death)
  Sender: FDA-Public Use
  Company Number: FR-ROCHE-1066092

PATIENT
  Sex: Male

DRUGS (2)
  1. MABTHERA [Suspect]
     Indication: CHRONIC LYMPHOCYTIC LEUKAEMIA
     Route: 065
  2. MABTHERA [Suspect]
     Dosage: THIRD INFUSION
     Dates: start: 20110927

REACTIONS (2)
  - INFUSION RELATED REACTION [None]
  - DEATH [None]
